FAERS Safety Report 17565382 (Version 3)
Quarter: 2020Q2

REPORT INFORMATION
  Report Type: Spontaneous
  Country: US (occurrence: US)
  Receive Date: 20200320
  Receipt Date: 20200608
  Transmission Date: 20200713
  Serious: No
  Sender: FDA-Public Use
  Company Number: US-PFIZER INC-2020119099

PATIENT
  Age: 71 Year
  Sex: Female

DRUGS (2)
  1. FLECTOR [Suspect]
     Active Substance: DICLOFENAC EPOLAMINE
     Dosage: UNK
  2. FLECTOR [Suspect]
     Active Substance: DICLOFENAC EPOLAMINE
     Dosage: 1 DF, 2X/DAY (APPLY 1 PATCH TOPICALLY EVERY 12 (TWELVE) HOURS)
     Route: 061
     Dates: start: 20200604

REACTIONS (1)
  - Feeling abnormal [Unknown]
